FAERS Safety Report 9371840 (Version 1)
Quarter: 2013Q2

REPORT INFORMATION
  Report Type: Report from Study
  Country: US (occurrence: US)
  Receive Date: 20130627
  Receipt Date: 20130627
  Transmission Date: 20140414
  Serious: Yes (Other)
  Sender: FDA-Public Use
  Company Number: US-MYLANLABS-2012S1008130

PATIENT
  Age: 65 Year
  Sex: Male

DRUGS (9)
  1. CLOZAPINE TABLETS [Suspect]
     Route: 048
     Dates: end: 20120906
  2. CLOZAPINE TABLETS [Suspect]
     Route: 048
     Dates: start: 20120907, end: 20121002
  3. CLOZAPINE TABLETS [Suspect]
     Route: 048
     Dates: start: 20121003
  4. CLOZAPINE TABLETS [Suspect]
     Route: 048
     Dates: end: 20120906
  5. CLOZAPINE TABLETS [Suspect]
     Route: 048
     Dates: start: 20120907, end: 20121002
  6. CLOZAPINE TABLETS [Suspect]
     Route: 048
     Dates: start: 20121003
  7. CLONAZEPAM [Concomitant]
     Route: 048
  8. DEPAKOTE [Concomitant]
  9. PAXIL /00830802/ [Concomitant]

REACTIONS (1)
  - Granulocytopenia [Recovered/Resolved]
